FAERS Safety Report 5281354-3 (Version None)
Quarter: 2007Q1

REPORT INFORMATION
  Report Type: 
  Country: None (occurrence: None)
  Receive Date: 20070330
  Receipt Date: 20070322
  Transmission Date: 20070707
  Serious: Yes (Disabling)
  Sender: FDA-Public Use
  Company Number: JP-JNJFOC-20070306277

PATIENT
  Age: 64 Year
  Sex: Male

DRUGS (3)
  1. LEVOFLOXACIN [Suspect]
     Indication: GASTROENTERITIS
     Route: 048
  2. BUSCOPAN [Concomitant]
     Route: 048
  3. BIO THREE [Concomitant]
     Route: 065

REACTIONS (6)
  - CONVULSION [None]
  - DIZZINESS [None]
  - FEELING OF BODY TEMPERATURE CHANGE [None]
  - HYPERHIDROSIS [None]
  - THIRST [None]
  - TREMOR [None]
